FAERS Safety Report 12632961 (Version 1)
Quarter: 2016Q3

REPORT INFORMATION
  Report Type: Spontaneous
  Country: US (occurrence: None)
  Receive Date: 20160808
  Receipt Date: 20160808
  Transmission Date: 20161109
  Serious: Yes (Life-Threatening, Hospitalization)
  Sender: FDA-Public Use
  Company Number: None

PATIENT
  Age: 65 Year
  Sex: Male
  Weight: 48.99 kg

DRUGS (4)
  1. TRESADONE [Concomitant]
  2. DEPAKOTE [Suspect]
     Active Substance: DIVALPROEX SODIUM
     Indication: PSYCHOTIC BEHAVIOUR
     Dates: start: 20150117, end: 20150118
  3. DEPAKOTE [Suspect]
     Active Substance: DIVALPROEX SODIUM
     Indication: DEMENTIA ALZHEIMER^S TYPE
     Dates: start: 20150117, end: 20150118
  4. METAMINE [Concomitant]
     Active Substance: TROLNITRATE

REACTIONS (4)
  - Dysphagia [None]
  - Weight decreased [None]
  - Pneumonia aspiration [None]
  - Pulmonary oedema [None]

NARRATIVE: CASE EVENT DATE: 20150117
